FAERS Safety Report 12555596 (Version 1)
Quarter: 2016Q3

REPORT INFORMATION
  Report Type: Report from Study
  Country: MX (occurrence: MX)
  Receive Date: 20160714
  Receipt Date: 20160714
  Transmission Date: 20161109
  Serious: Yes (Death, Other)
  Sender: FDA-Public Use
  Company Number: PHHY2016MX095211

PATIENT
  Age: 66 Year
  Sex: Male

DRUGS (1)
  1. ULTIBRO BREEZHALER [Suspect]
     Active Substance: GLYCOPYRRONIUM\INDACATEROL
     Indication: PULMONARY FIBROSIS
     Dosage: 1 DF (50 UG), QD
     Route: 065
     Dates: start: 201604, end: 201606

REACTIONS (5)
  - Respiratory arrest [Unknown]
  - Cardiomegaly [Unknown]
  - Death [Fatal]
  - Blood glucose increased [Unknown]
  - Product use issue [Recovered/Resolved]

NARRATIVE: CASE EVENT DATE: 201604
